FAERS Safety Report 6292237-4 (Version None)
Quarter: 2009Q3

REPORT INFORMATION
  Report Type: 
  Country: None (occurrence: None)
  Receive Date: 20090730
  Receipt Date: 20090730
  Transmission Date: 20100115
  Serious: No
  Sender: FDA-Public Use
  Company Number: None

PATIENT
  Sex: Female

DRUGS (3)
  1. TOPAMAX [Suspect]
     Dosage: 4 A DAY ORAL
     Route: 048
     Dates: start: 20090305
  2. TOPAMAX [Suspect]
     Dosage: 4 A DAY ORAL
     Route: 048
     Dates: start: 20090603
  3. TOPAMAX [Suspect]
     Dosage: 4 A DAY ORAL
     Route: 048
     Dates: start: 20090710

REACTIONS (5)
  - AGGRESSION [None]
  - AGITATION [None]
  - BIPOLAR DISORDER [None]
  - OBSESSIVE-COMPULSIVE DISORDER [None]
  - PRODUCT SUBSTITUTION ISSUE [None]
